FAERS Safety Report 6907078-1 (Version None)
Quarter: 2010Q3

REPORT INFORMATION
  Report Type: 
  Country: None (occurrence: None)
  Receive Date: 20100804
  Receipt Date: 20080707
  Transmission Date: 20110219
  Serious: No
  Sender: FDA-Public Use
  Company Number: US-PFIZER INC-2008030090

PATIENT
  Sex: Male

DRUGS (3)
  1. SELZENTRY [Suspect]
     Indication: HIV INFECTION
     Route: 048
     Dates: start: 20080201, end: 20080301
  2. ISENTRESS [Concomitant]
     Route: 048
  3. SUSTIVA [Concomitant]
     Route: 048

REACTIONS (1)
  - LIVER FUNCTION TEST ABNORMAL [None]
